FAERS Safety Report 7717689-1 (Version None)
Quarter: 2011Q3

REPORT INFORMATION
  Report Type: 
  Country: None (occurrence: None)
  Receive Date: 20110830
  Receipt Date: 20110826
  Transmission Date: 20111222
  Serious: Yes (Death)
  Sender: FDA-Public Use
  Company Number: GB-TEVA-298365ISR

PATIENT
  Age: 92 Year
  Sex: Female
  Weight: 64 kg

DRUGS (3)
  1. PREDNISOLONE [Suspect]
     Indication: TEMPORAL ARTERITIS
     Dates: start: 20110517
  2. CLOPIDOGREL [Interacting]
     Indication: ATRIAL FIBRILLATION
     Dates: start: 20110505, end: 20110604
  3. CLOPIDOGREL [Interacting]
     Indication: CEREBROVASCULAR ACCIDENT PROPHYLAXIS

REACTIONS (2)
  - DRUG INTERACTION [None]
  - DUODENAL ULCER HAEMORRHAGE [None]
